FAERS Safety Report 9180171 (Version 1)
Quarter: 2013Q1

REPORT INFORMATION
  Report Type: Report from Study
  Country: US (occurrence: US)
  Receive Date: 20130321
  Receipt Date: 20130321
  Transmission Date: 20140127
  Serious: Yes (Hospitalization)
  Sender: FDA-Public Use
  Company Number: US-US-EMD SERONO, INC.-7199857

PATIENT
  Age: 45 None
  Sex: Female

DRUGS (2)
  1. REBIF [Suspect]
     Indication: MULTIPLE SCLEROSIS
     Route: 058
     Dates: start: 20120316
  2. DIOVAN [Concomitant]
     Indication: HYPERTENSION
     Dates: start: 2010

REACTIONS (3)
  - Intervertebral disc protrusion [Not Recovered/Not Resolved]
  - Drug withdrawal syndrome [Unknown]
  - Hypothyroidism [Unknown]
